FAERS Safety Report 8360351-5 (Version None)
Quarter: 2012Q2

REPORT INFORMATION
  Report Type: 
  Country: None (occurrence: None)
  Receive Date: 20120515
  Receipt Date: 20120511
  Transmission Date: 20120825
  Serious: Yes (Other)
  Sender: FDA-Public Use
  Company Number: US-JNJFOC-20120503444

PATIENT
  Sex: Female

DRUGS (2)
  1. TYLENOL COLD AND FLU SEVERE [Suspect]
     Indication: INFLUENZA
     Dosage: 2 EVERY 4 HOURS
     Route: 048
     Dates: start: 20120427, end: 20120429
  2. TYLENOL COLD AND FLU SEVERE [Suspect]
     Indication: COUGH
     Dosage: 2 EVERY 4 HOURS
     Route: 048
     Dates: start: 20120427, end: 20120429

REACTIONS (2)
  - INSOMNIA [None]
  - HALLUCINATION [None]
